FAERS Safety Report 5943443-7 (Version None)
Quarter: 2008Q4

REPORT INFORMATION
  Report Type: 
  Country: None (occurrence: None)
  Receive Date: 20081105
  Receipt Date: 20081105
  Transmission Date: 20090506
  Serious: No
  Sender: FDA-Public Use
  Company Number: None

PATIENT
  Age: 52 Year
  Sex: Female
  Weight: 47.6277 kg

DRUGS (2)
  1. ALDARA [Suspect]
     Indication: SKIN CANCER
     Dosage: ONE PACKET 4 TIMES WEEK/8 WK
     Dates: start: 20050101, end: 20060101
  2. ALDARA [Suspect]
     Dosage: ONE PACK 2X WEEK / 15 WEEKS
     Dates: start: 20081001

REACTIONS (18)
  - APPLICATION SITE REACTION [None]
  - AUTOIMMUNE DISORDER [None]
  - CHEST DISCOMFORT [None]
  - DEAFNESS [None]
  - DRY EYE [None]
  - DRY MOUTH [None]
  - DYSPNOEA [None]
  - ERYTHEMA [None]
  - GASTROINTESTINAL PAIN [None]
  - INFLAMMATION [None]
  - MALABSORPTION [None]
  - OPEN WOUND [None]
  - PHARYNGEAL OEDEMA [None]
  - RASH [None]
  - SINUS DISORDER [None]
  - SINUS HEADACHE [None]
  - SKIN DISORDER [None]
  - WEIGHT DECREASED [None]
